FAERS Safety Report 5313082-X (Version None)
Quarter: 2007Q2

REPORT INFORMATION
  Report Type: 
  Country: None (occurrence: None)
  Receive Date: 20070430
  Receipt Date: 20070419
  Transmission Date: 20071010
  Serious: Yes (Death, Hospitalization)
  Sender: FDA-Public Use
  Company Number: FR-PFIZER INC-2007031413

PATIENT
  Age: 71 Year
  Sex: Female

DRUGS (8)
  1. ALDACTONE [Suspect]
     Indication: ESSENTIAL HYPERTENSION
     Route: 048
  2. CORTANCYL [Suspect]
     Indication: RHEUMATOID ARTHRITIS
     Dosage: DAILY DOSE:3MG
     Route: 048
  3. DIGOXIN [Suspect]
     Dosage: TEXT:5 DF-FREQ:FREQUENCY: WEEKLY
     Route: 048
  4. LASIX [Suspect]
     Indication: ESSENTIAL HYPERTENSION
     Route: 048
  5. PREVISCAN [Suspect]
     Dosage: DAILY DOSE:20MG
     Route: 048
  6. REMICADE [Suspect]
     Indication: RHEUMATOID ARTHRITIS
     Route: 042
     Dates: start: 20020805, end: 20060404
  7. XALATAN [Concomitant]
  8. CALCIPRAT [Concomitant]

REACTIONS (1)
  - LYMPHOMA [None]
